FAERS Safety Report 10262560 (Version 2)
Quarter: 2014Q2

REPORT INFORMATION
  Report Type: Report from Study
  Country: JP (occurrence: JP)
  Receive Date: 20140626
  Receipt Date: 20140626
  Transmission Date: 20141212
  Serious: Yes (Life-Threatening, Other)
  Sender: FDA-Public Use
  Company Number: JP-PFIZER INC-2013326445

PATIENT
  Age: 30 Year
  Sex: Male
  Weight: 48 kg

DRUGS (24)
  1. NOVASTAN [Suspect]
     Indication: HEPARIN-INDUCED THROMBOCYTOPENIA
     Dosage: 0.5 UG/KG,1 MIN
     Route: 041
     Dates: start: 20121222, end: 20121222
  2. NOVASTAN [Suspect]
     Dosage: 0.425 UG/KG,1 MIN
     Route: 041
     Dates: start: 20121222, end: 20121222
  3. NOVASTAN [Suspect]
     Dosage: 0.375 UG/KG, 1 MIN
     Route: 041
     Dates: start: 20121222, end: 20121222
  4. NOVASTAN [Suspect]
     Dosage: 0.275 UG/KG, 1 MIN
     Route: 041
     Dates: start: 20121222, end: 20121223
  5. NOVASTAN [Suspect]
     Dosage: 0.175 UG/KG, 1 MIN
     Route: 041
     Dates: start: 20121223, end: 20121223
  6. NOVASTAN [Suspect]
     Dosage: 0.09 UG/KG, 1 MIN
     Route: 041
     Dates: start: 20121223, end: 20121229
  7. NOVASTAN [Suspect]
     Dosage: 0.04 UG/KG, 1 MIN
     Route: 041
     Dates: start: 20121231, end: 20121231
  8. NOVASTAN [Suspect]
     Dosage: 0.08 UG/KG, 1 MIN
     Route: 041
     Dates: start: 20121231, end: 20130101
  9. NOVASTAN [Suspect]
     Dosage: 0.16 UG/KG, 1 MIN
     Route: 041
     Dates: start: 20130101, end: 20130103
  10. NOVASTAN [Suspect]
     Dosage: 0.18 UG/KG, 1 MIN
     Route: 041
     Dates: start: 20130103, end: 20130104
  11. NOVASTAN [Suspect]
     Dosage: 0.15 UG/KG, 1 MIN
     Route: 041
     Dates: start: 20130104, end: 20130105
  12. NOVASTAN [Suspect]
     Dosage: 0.1 UG/KG, 1 MIN
     Route: 041
     Dates: start: 20130105, end: 20130109
  13. NOVASTAN [Suspect]
     Dosage: 2.5 UG/KG, 1 MIN
     Route: 041
     Dates: start: 20130109, end: 20130123
  14. BAYASPIRIN [Suspect]
     Indication: PROPHYLAXIS
     Dosage: 100 MG, UNK
     Route: 048
     Dates: start: 20130102
  15. PLETAAL [Suspect]
     Indication: PROPHYLAXIS
     Dosage: 200 MG, UNK
     Route: 048
     Dates: start: 20130115, end: 20130204
  16. HEPARIN ^NOVO^ [Concomitant]
     Indication: INTRA-AORTIC BALLOON PLACEMENT
     Dosage: UNK
     Route: 051
     Dates: start: 20121210
  17. HEPARIN ^NOVO^ [Concomitant]
     Indication: CONGESTIVE CARDIOMYOPATHY
  18. WARFARIN [Concomitant]
     Dosage: 3-5 MG/DAY
     Route: 048
     Dates: start: 20121231
  19. INOVAN [Concomitant]
     Dosage: 4 GAMMA/DAY
     Route: 042
     Dates: start: 20121210, end: 20130111
  20. DOBUTREX [Concomitant]
     Dosage: 2 GAMMA/DAY
     Route: 042
     Dates: start: 20121211, end: 20130113
  21. MILRILA [Concomitant]
     Dosage: 0.5 GAMMA/DAY
     Route: 042
     Dates: start: 20121229
  22. HANP [Concomitant]
     Dosage: 1000 UG, UNK
     Route: 042
     Dates: start: 20121229, end: 20130224
  23. ZOSYN [Concomitant]
     Indication: PROPHYLAXIS
     Dosage: UNK
     Route: 042
     Dates: start: 20121229, end: 20130104
  24. LASIX [Concomitant]
     Dosage: 150 MG, UNK
     Route: 042
     Dates: start: 20121210

REACTIONS (2)
  - Hepatic function abnormal [Recovering/Resolving]
  - Pulmonary haemorrhage [Recovered/Resolved]
